FAERS Safety Report 14881278 (Version 1)
Quarter: 2018Q2

REPORT INFORMATION
  Report Type: Spontaneous
  Country: US (occurrence: US)
  Receive Date: 20180425
  Receipt Date: 20180425
  Transmission Date: 20180711
  Serious: Yes (Life-Threatening, Disabling)
  Sender: FDA-Public Use
  Company Number: None

PATIENT
  Age: 14 Year
  Sex: Female
  Weight: 77.4 kg

DRUGS (1)
  1. ARIPIPRAZOLE. [Suspect]
     Active Substance: ARIPIPRAZOLE
     Indication: TOURETTE^S DISORDER
     Dosage: ?          QUANTITY:45 DF DOSAGE FORM;?
     Route: 048

REACTIONS (6)
  - Weight increased [None]
  - Binge eating [None]
  - Food craving [None]
  - Obsessive-compulsive disorder [None]
  - Quality of life decreased [None]
  - Liver disorder [None]

NARRATIVE: CASE EVENT DATE: 20180116
